FAERS Safety Report 4678035-3 (Version None)
Quarter: 2005Q2

REPORT INFORMATION
  Report Type: 
  Country: None (occurrence: None)
  Receive Date: 20050531
  Receipt Date: 20041123
  Transmission Date: 20051028
  Serious: Yes (Other)
  Sender: FDA-Public Use
  Company Number: US-MERCK-0411USA03891

PATIENT
  Age: 61 Year
  Sex: Female
  Weight: 80 kg

DRUGS (10)
  1. VIOXX [Suspect]
     Indication: ARTHRALGIA
     Route: 048
     Dates: start: 20001030, end: 20040901
  2. VIOXX [Suspect]
     Indication: EXOSTOSIS
     Route: 048
     Dates: start: 20001030, end: 20040901
  3. TOFRANIL [Concomitant]
     Route: 065
     Dates: start: 19790101
  4. PLAVIX [Concomitant]
     Route: 065
     Dates: start: 20040416
  5. SYNTHROID [Concomitant]
     Route: 065
  6. NORVASC [Concomitant]
     Route: 065
     Dates: start: 19900101
  7. PREMPRO (PREMARIN;CYCRIN 14/14) [Concomitant]
     Route: 065
     Dates: start: 19970101, end: 20040601
  8. STROVITE [Concomitant]
     Route: 065
  9. ASPIRIN [Concomitant]
     Route: 048
     Dates: start: 19950501
  10. LIBRIUM [Concomitant]
     Route: 065

REACTIONS (24)
  - ANXIETY DISORDER [None]
  - ASTHENIA [None]
  - BLOOD PRESSURE INCREASED [None]
  - BRONCHITIS [None]
  - CEREBROVASCULAR ACCIDENT [None]
  - CHEST PAIN [None]
  - DIZZINESS [None]
  - DYSPNOEA [None]
  - FATIGUE [None]
  - GASTROINTESTINAL MOTILITY DISORDER [None]
  - HEADACHE [None]
  - HYPERCHOLESTEROLAEMIA [None]
  - HYPERTRIGLYCERIDAEMIA [None]
  - HYPOAESTHESIA [None]
  - INSOMNIA [None]
  - MEMORY IMPAIRMENT [None]
  - MITRAL VALVE INCOMPETENCE [None]
  - MORBID THOUGHTS [None]
  - PLATELET AGGREGATION INCREASED [None]
  - PRESBYACUSIS [None]
  - TRICUSPID VALVE INCOMPETENCE [None]
  - UPPER RESPIRATORY TRACT INFECTION [None]
  - VERTIGO [None]
  - VERTIGO POSITIONAL [None]
